FAERS Safety Report 18732822 (Version 1)
Quarter: 2021Q1

REPORT INFORMATION
  Report Type: Spontaneous
  Country: US (occurrence: US)
  Receive Date: 20210112
  Receipt Date: 20210112
  Transmission Date: 20210419
  Serious: No
  Sender: FDA-Public Use
  Company Number: US-009507513-2012USA009672

PATIENT
  Age: 57 Year
  Sex: Female

DRUGS (4)
  1. PRIMAXIN IV [Suspect]
     Active Substance: CILASTATIN SODIUM\IMIPENEM
     Indication: EYE INFECTION BACTERIAL
     Dosage: UNK
  2. AMIKACIN. [Concomitant]
     Active Substance: AMIKACIN
  3. CLARITHROMYCIN. [Concomitant]
     Active Substance: CLARITHROMYCIN
  4. CEFOXITIN [Concomitant]
     Active Substance: CEFOXITIN SODIUM

REACTIONS (1)
  - Product use in unapproved indication [Unknown]
